FAERS Safety Report 4688302-5 (Version None)
Quarter: 2005Q2

REPORT INFORMATION
  Report Type: 
  Country: None (occurrence: None)
  Receive Date: 20050609
  Receipt Date: 20050606
  Transmission Date: 20051028
  Serious: Yes (Hospitalization)
  Sender: FDA-Public Use
  Company Number: DEWYE585514APR05

PATIENT
  Sex: Female

DRUGS (1)
  1. VENLAFAXINE HCL [Suspect]
     Dosage: OVER A LONGER PERIOD

REACTIONS (4)
  - CUSHING'S SYNDROME [None]
  - MULTIPLE FRACTURES [None]
  - PATHOLOGICAL FRACTURE [None]
  - PITUITARY TUMOUR BENIGN [None]
